FAERS Safety Report 6687646-5 (Version None)
Quarter: 2010Q2

REPORT INFORMATION
  Report Type: 
  Country: None (occurrence: None)
  Receive Date: 20100415
  Receipt Date: 20100331
  Transmission Date: 20101027
  Serious: Yes (Other)
  Sender: FDA-Public Use
  Company Number: 2010001145

PATIENT
  Age: 72 Year
  Sex: Male
  Weight: 47.7 kg

DRUGS (13)
  1. ERLOTINIB (ERLOTINIB) (TABLET) (ERLOTINIB) [Suspect]
     Indication: LUNG SQUAMOUS CELL CARCINOMA STAGE UNSPECIFIED
     Dosage: 150 MG, QD, ORAL, 100 MG,QD, ORAL
     Route: 048
     Dates: start: 20090526, end: 20090624
  2. ERLOTINIB (ERLOTINIB) (TABLET) (ERLOTINIB) [Suspect]
     Indication: LUNG SQUAMOUS CELL CARCINOMA STAGE UNSPECIFIED
     Dosage: 150 MG, QD, ORAL, 100 MG,QD, ORAL
     Route: 048
     Dates: start: 20090624, end: 20090721
  3. MEXITIL [Concomitant]
  4. DICLOFENAC SODIUM [Concomitant]
  5. MYONAL (EPIRISONE HYDROCHLORIDE) [Concomitant]
  6. TANNALBIN (ALBUMIN TANNATE) [Concomitant]
  7. LOPERAMIDE HCL [Concomitant]
  8. GLUFAST [Concomitant]
  9. MIYARI BACTERIA (MIYARI BACTERIA) [Concomitant]
  10. MUCOSTA (REBAMIPIDE) [Concomitant]
  11. METHYCOBAL (MECOBALAMIN) [Concomitant]
  12. FLIVAS (NAFTOPIDIL) [Concomitant]
  13. LANSOPRAZOLE [Concomitant]

REACTIONS (7)
  - ANAEMIA [None]
  - BLOOD POTASSIUM DECREASED [None]
  - DECREASED APPETITE [None]
  - DERMATITIS ACNEIFORM [None]
  - ENTERITIS INFECTIOUS [None]
  - LUNG SQUAMOUS CELL CARCINOMA STAGE UNSPECIFIED [None]
  - MALIGNANT NEOPLASM PROGRESSION [None]
